FAERS Safety Report 8454285-5 (Version None)
Quarter: 2012Q2

REPORT INFORMATION
  Report Type: 
  Country: None (occurrence: None)
  Receive Date: 20120620
  Receipt Date: 20120618
  Transmission Date: 20120825
  Serious: No
  Sender: FDA-Public Use
  Company Number: US-BAYER-2012-060989

PATIENT
  Age: 56 Year
  Sex: Male

DRUGS (2)
  1. ALEVE (CAPLET) [Suspect]
     Indication: PYREXIA
     Route: 048
  2. LOTRIMIN [Concomitant]
     Indication: NASAL CONGESTION

REACTIONS (2)
  - DIZZINESS [None]
  - ASTHENIA [None]
